FAERS Safety Report 17251856 (Version 1)
Quarter: 2020Q1

REPORT INFORMATION
  Report Type: Spontaneous
  Country: DE (occurrence: DE)
  Receive Date: 20200109
  Receipt Date: 20200109
  Transmission Date: 20200409
  Serious: Yes (Death, Other)
  Sender: FDA-Public Use
  Company Number: DE-SA-2020SA005458

PATIENT
  Age: 66 Year
  Sex: Male

DRUGS (10)
  1. DOCETAXEL. [Suspect]
     Active Substance: DOCETAXEL
     Indication: LUNG ADENOCARCINOMA
     Dosage: 75MG/M2 D1; 3RD LINE, Q3W
     Route: 065
     Dates: start: 201901
  2. PEMETREXED DISODIUM [Suspect]
     Active Substance: PEMETREXED DISODIUM
     Dosage: 1ST LINE + MAINTENANCE; 6 CYCLES
     Route: 065
     Dates: start: 201507, end: 201507
  3. PEMETREXED DISODIUM [Suspect]
     Active Substance: PEMETREXED DISODIUM
     Dosage: MAINTENANCE THERAPY; 19 CYCLES
     Route: 065
     Dates: start: 201511, end: 201511
  4. CISPLATIN. [Suspect]
     Active Substance: CISPLATIN
     Indication: LUNG ADENOCARCINOMA
     Dosage: UNK, CYCLICAL
     Route: 065
     Dates: start: 201506, end: 201506
  5. CISPLATIN. [Suspect]
     Active Substance: CISPLATIN
     Dosage: UNK, CYCLICAL
     Route: 065
     Dates: start: 201511, end: 201511
  6. KEYTRUDA [Suspect]
     Active Substance: PEMBROLIZUMAB
     Indication: LUNG ADENOCARCINOMA
     Dosage: 2MG/KG BODY WEIGHT, 2ND LINE, 34 CYCLES
     Route: 065
     Dates: start: 201701, end: 201701
  7. PEMETREXED DISODIUM [Suspect]
     Active Substance: PEMETREXED DISODIUM
     Dosage: 1ST LINE + MAINTENANCE; 6 CYCLES
     Route: 065
     Dates: start: 201507, end: 201507
  8. PEMETREXED DISODIUM [Suspect]
     Active Substance: PEMETREXED DISODIUM
     Dosage: UNK UNK, QCY
     Route: 065
     Dates: start: 201612, end: 201612
  9. KEYTRUDA [Suspect]
     Active Substance: PEMBROLIZUMAB
     Dosage: 2MG/KG BODY WEIGHT, 2ND LINE, 34 CYCLES
     Route: 065
     Dates: start: 201901, end: 201901
  10. NINTEDANIB [Suspect]
     Active Substance: NINTEDANIB
     Indication: LUNG ADENOCARCINOMA
     Dosage: 200 MILLIGRAM, ONCE IN THE MORNING AND ONCE IN THE EVENING, 3RD LINE
     Route: 016
     Dates: start: 201901

REACTIONS (3)
  - Coronary artery disease [Fatal]
  - Arteriosclerosis [Fatal]
  - Malignant neoplasm progression [Unknown]

NARRATIVE: CASE EVENT DATE: 201901
